FAERS Safety Report 12811302 (Version 1)
Quarter: 2016Q4

REPORT INFORMATION
  Report Type: Spontaneous
  Country: US (occurrence: US)
  Receive Date: 20161005
  Receipt Date: 20161005
  Transmission Date: 20170207
  Serious: Yes (Life-Threatening, Hospitalization)
  Sender: FDA-Public Use
  Company Number: None

PATIENT
  Age: 62 Year
  Sex: Female
  Weight: 38.1 kg

DRUGS (14)
  1. RANEXA [Suspect]
     Active Substance: RANOLAZINE
     Indication: ANGINA PECTORIS
     Dosage: ?          QUANTITY:2 PILLS;?
     Route: 048
     Dates: start: 20160817, end: 20160820
  2. LIPITOR [Concomitant]
     Active Substance: ATORVASTATIN CALCIUM
  3. METOPROLOL TARTRATE. [Concomitant]
     Active Substance: METOPROLOL TARTRATE
  4. AMLODIPINE BESYLATE. [Concomitant]
     Active Substance: AMLODIPINE BESYLATE
  5. SINGULAIR [Concomitant]
     Active Substance: MONTELUKAST SODIUM
  6. NITROSTAT [Concomitant]
     Active Substance: NITROGLYCERIN
  7. LYRICA [Concomitant]
     Active Substance: PREGABALIN
  8. RANITIDINE. [Concomitant]
     Active Substance: RANITIDINE
  9. PLAQUENIL [Concomitant]
     Active Substance: HYDROXYCHLOROQUINE SULFATE
  10. LOSARTAN POTASSIUM. [Concomitant]
     Active Substance: LOSARTAN POTASSIUM
  11. PHENERGAN [Concomitant]
     Active Substance: PROMETHAZINE HYDROCHLORIDE
  12. RANEXA [Suspect]
     Active Substance: RANOLAZINE
     Indication: CHEST PAIN
     Dosage: ?          QUANTITY:2 PILLS;?
     Route: 048
     Dates: start: 20160817, end: 20160820
  13. ASA [Concomitant]
     Active Substance: ASPIRIN
  14. XANAX [Concomitant]
     Active Substance: ALPRAZOLAM

REACTIONS (5)
  - Myocardial infarction [None]
  - Vision blurred [None]
  - Neck pain [None]
  - Headache [None]
  - Dizziness [None]
